FAERS Safety Report 7914466-3 (Version None)
Quarter: 2011Q4

REPORT INFORMATION
  Report Type: 
  Country: None (occurrence: None)
  Receive Date: 20111115
  Receipt Date: 20111109
  Transmission Date: 20120403
  Serious: Yes (Death, Other)
  Sender: FDA-Public Use
  Company Number: GB-CELGENEUS-167-20785-11090010

PATIENT

DRUGS (6)
  1. THALIDOMIDE [Suspect]
     Indication: MULTIPLE MYELOMA
     Dosage: OR 4 WEEKS AND INCREASED EVERY 4 WEEKS IN 50-MG INCREMENTS TO A MAXIMUM OF 200MG/DAY
     Route: 048
  2. BIPHOSPHONATE [Concomitant]
     Route: 065
  3. DEXAMETHASONE [Suspect]
     Indication: MULTIPLE MYELOMA
     Dosage: 20 MILLIGRAM
     Route: 065
  4. MELPHALAN HYDROCHLORIDE [Concomitant]
     Indication: MULTIPLE MYELOMA
     Dosage: 7 MILLIGRAM/SQ. METER
     Route: 065
  5. PREDNISOLONE [Concomitant]
     Indication: MULTIPLE MYELOMA
     Dosage: 40 MILLIGRAM
     Route: 065
  6. CYCLOPHOSPHAMIDE [Suspect]
     Indication: MULTIPLE MYELOMA
     Route: 065

REACTIONS (17)
  - PULMONARY EMBOLISM [None]
  - COMPLICATIONS OF TRANSPLANT SURGERY [None]
  - RENAL FAILURE [None]
  - MULTIPLE MYELOMA [None]
  - EMBOLISM [None]
  - DEEP VEIN THROMBOSIS [None]
  - THROMBOSIS IN DEVICE [None]
  - CONSTIPATION [None]
  - HYPOTHYROIDISM [None]
  - PERIPHERAL SENSORY NEUROPATHY [None]
  - RASH [None]
  - BLOOD ALKALINE PHOSPHATASE INCREASED [None]
  - INFECTION [None]
  - PANCYTOPENIA [None]
  - DEATH [None]
  - PERIPHERAL MOTOR NEUROPATHY [None]
  - SOMNOLENCE [None]
